FAERS Safety Report 12077444 (Version 2)
Quarter: 2016Q3

REPORT INFORMATION
  Report Type: Report from Study
  Country: US (occurrence: US)
  Receive Date: 20160215
  Receipt Date: 20160805
  Transmission Date: 20161109
  Serious: No
  Sender: FDA-Public Use
  Company Number: PHEH2016US003583

PATIENT
  Age: 44 Year
  Sex: Female

DRUGS (1)
  1. GILENYA [Suspect]
     Active Substance: FINGOLIMOD HYDROCHLORIDE
     Indication: PRODUCT USED FOR UNKNOWN INDICATION
     Dosage: UNK UNK, QD
     Route: 065
     Dates: start: 201602

REACTIONS (6)
  - Dizziness [Unknown]
  - Dyspnoea [Unknown]
  - Drug monitoring procedure not performed [Unknown]
  - Fatigue [Unknown]
  - Cyst [Unknown]
  - Feeling hot [Unknown]

NARRATIVE: CASE EVENT DATE: 2016
